FAERS Safety Report 5239993-1 (Version None)
Quarter: 2007Q1

REPORT INFORMATION
  Report Type: 
  Country: None (occurrence: None)
  Receive Date: 20070216
  Receipt Date: 20070207
  Transmission Date: 20070707
  Serious: Yes (Hospitalization)
  Sender: FDA-Public Use
  Company Number: AU-PFIZER INC-2007003661

PATIENT
  Sex: Male

DRUGS (3)
  1. SUTENT [Suspect]
     Route: 048
  2. DILANTIN [Suspect]
     Indication: CONVULSION
     Route: 048
  3. MS CONTIN [Concomitant]
     Route: 048

REACTIONS (6)
  - CONFUSIONAL STATE [None]
  - DIZZINESS [None]
  - DRUG TOXICITY [None]
  - GAIT DISTURBANCE [None]
  - NAUSEA [None]
  - SOMNOLENCE [None]
